FAERS Safety Report 5767482-4 (Version None)
Quarter: 2008Q2

REPORT INFORMATION
  Report Type: 
  Country: None (occurrence: None)
  Receive Date: 20080612
  Receipt Date: 20080604
  Transmission Date: 20081010
  Serious: Yes (Hospitalization)
  Sender: FDA-Public Use
  Company Number: US-ELI_LILLY_AND_COMPANY-US200806001026

PATIENT
  Sex: Female

DRUGS (6)
  1. FORTEO [Suspect]
     Dates: start: 20080201
  2. LISINOPRIL [Concomitant]
     Dosage: 2.5 MG, UNK
  3. PREVACID [Concomitant]
  4. CALCIUM [Concomitant]
  5. PAXIL [Concomitant]
     Dosage: 10 MG, UNK
  6. VITAMINS NOS [Concomitant]

REACTIONS (1)
  - MYOCARDIAL INFARCTION [None]
